FAERS Safety Report 7883843-1 (Version None)
Quarter: 2011Q4

REPORT INFORMATION
  Report Type: 
  Country: None (occurrence: None)
  Receive Date: 20111102
  Receipt Date: 20111020
  Transmission Date: 20120403
  Serious: Yes (Other)
  Sender: FDA-Public Use
  Company Number: SE-ELI_LILLY_AND_COMPANY-SE201110006132

PATIENT
  Age: 19 Year
  Sex: Male

DRUGS (6)
  1. CYMBALTA [Suspect]
     Indication: DEPRESSION
     Dosage: 60 MG, QD
     Route: 048
     Dates: start: 20090401
  2. STRATTERA [Suspect]
     Indication: DEPRESSION
     Dosage: 80 MG, QD
     Route: 048
     Dates: start: 20110701, end: 20110715
  3. TRIOBE [Concomitant]
  4. ATARAX [Concomitant]
  5. ALVEDON [Concomitant]
  6. SCHERIPROCT N [Concomitant]

REACTIONS (2)
  - OFF LABEL USE [None]
  - SUICIDAL IDEATION [None]
